FAERS Safety Report 21359093 (Version 1)
Quarter: 2022Q3

REPORT INFORMATION
  Report Type: Spontaneous
  Country: US (occurrence: None)
  Receive Date: 20220920
  Receipt Date: 20220920
  Transmission Date: 20221026
  Serious: Yes (Hospitalization, Disabling)
  Sender: FDA-Public Use
  Company Number: None

PATIENT
  Age: 27 Year
  Sex: Female
  Weight: 72 kg

DRUGS (1)
  1. DUPIXENT [Suspect]
     Active Substance: DUPILUMAB
     Indication: Dermatitis allergic

REACTIONS (14)
  - Hypoaesthesia [None]
  - Muscle spasms [None]
  - Abdominal discomfort [None]
  - Dizziness [None]
  - Eye infection [None]
  - White blood cell count increased [None]
  - Malaise [None]
  - Asthenia [None]
  - Decreased appetite [None]
  - Arthralgia [None]
  - Pyrexia [None]
  - Swelling face [None]
  - Swelling [None]
  - Syncope [None]

NARRATIVE: CASE EVENT DATE: 20220818
